FAERS Safety Report 7240527-0 (Version None)
Quarter: 2011Q1

REPORT INFORMATION
  Report Type: 
  Country: None (occurrence: None)
  Receive Date: 20110124
  Receipt Date: 20110120
  Transmission Date: 20110831
  Serious: No
  Sender: FDA-Public Use
  Company Number: US-PFIZER INC-2011014677

PATIENT
  Sex: Female

DRUGS (3)
  1. PROCARDIA XL [Suspect]
     Dosage: UNK
  2. LEXAPRO [Concomitant]
     Dosage: UNK
  3. PRAVASTATIN [Concomitant]
     Dosage: UNK

REACTIONS (4)
  - HYPERTENSION [None]
  - DEPRESSION [None]
  - BLOOD CHOLESTEROL INCREASED [None]
  - PERSONALITY CHANGE [None]
